FAERS Safety Report 9142369 (Version 1)
Quarter: 2013Q1

REPORT INFORMATION
  Report Type: Spontaneous
  Country: BE (occurrence: BE)
  Receive Date: 20130306
  Receipt Date: 20130306
  Transmission Date: 20140127
  Serious: Yes (Other)
  Sender: FDA-Public Use
  Company Number: BE-AMGEN-BELSP2013015577

PATIENT
  Sex: Female

DRUGS (3)
  1. ENBREL [Suspect]
     Indication: PSORIATIC ARTHROPATHY
     Dosage: UNK
  2. LEDERTREXATE                       /00113801/ [Suspect]
     Dosage: UNK
     Dates: start: 2010
  3. LAMOTRIGINE [Suspect]
     Dosage: UNK
     Dates: start: 2012

REACTIONS (2)
  - Epilepsy [Unknown]
  - Arthralgia [Unknown]
